FAERS Safety Report 7501998-5 (Version None)
Quarter: 2011Q2

REPORT INFORMATION
  Report Type: 
  Country: None (occurrence: None)
  Receive Date: 20110523
  Receipt Date: 20110523
  Transmission Date: 20111010
  Serious: Yes (Other)
  Sender: FDA-Public Use
  Company Number: None

PATIENT
  Age: 77 Year
  Sex: Female
  Weight: 50.8029 kg

DRUGS (1)
  1. LANSOPRAZOLE [Suspect]
     Indication: GASTROOESOPHAGEAL REFLUX DISEASE
     Dosage: 30 MG 1 EA DAY
     Dates: start: 20101019

REACTIONS (3)
  - INCREASED UPPER AIRWAY SECRETION [None]
  - COUGH [None]
  - PRODUCT SUBSTITUTION ISSUE [None]
